FAERS Safety Report 9771791 (Version 3)
Quarter: 2014Q3

REPORT INFORMATION
  Report Type: Report from Study
  Country: JP (occurrence: JP)
  Receive Date: 20131219
  Receipt Date: 20140828
  Transmission Date: 20150326
  Serious: Yes (Hospitalization)
  Sender: FDA-Public Use
  Company Number: JP-009507513-1312JPN008105

PATIENT
  Age: 70 Year
  Sex: Male
  Weight: 74.1 kg

DRUGS (12)
  1. ACYCLOVIR. [Concomitant]
     Active Substance: ACYCLOVIR
     Indication: INFECTION PROPHYLAXIS
     Dosage: UNK
     Dates: start: 20130910
  2. TABALUMAB [Suspect]
     Active Substance: TABALUMAB
     Indication: PLASMA CELL MYELOMA
     Dosage: 300 MG, UNK
     Route: 042
     Dates: start: 20130910
  3. NEXIUM [Concomitant]
     Active Substance: ESOMEPRAZOLE MAGNESIUM
     Indication: GASTRITIS PROPHYLAXIS
     Dosage: UNK
     Dates: start: 20130910
  4. MAGNESIUM OXIDE. [Concomitant]
     Active Substance: MAGNESIUM OXIDE
     Indication: CONSTIPATION
     Dosage: UNK
     Dates: start: 20100918
  5. MECOBALAMIN [Concomitant]
     Active Substance: METHYLCOBALAMIN
     Indication: PERIPHERAL SENSORY NEUROPATHY
     Dosage: UNK
     Dates: start: 20101116
  6. LYRICA [Concomitant]
     Active Substance: PREGABALIN
     Indication: PERIPHERAL SENSORY NEUROPATHY
     Dosage: UNK
     Dates: start: 20110111
  7. AZUNOL (SODIUM GUALENATE) [Concomitant]
     Indication: INFECTION PROPHYLAXIS
     Dosage: UNK
     Dates: start: 20131115
  8. GATIFLO [Concomitant]
     Active Substance: GATIFLOXACIN
     Indication: CONJUNCTIVITIS
     Dosage: UNK
     Dates: start: 20130816
  9. BORTEZOMIB [Suspect]
     Active Substance: BORTEZOMIB
     Indication: PLASMA CELL MYELOMA
     Dosage: 2.34 MG (1.3MG/M2)
     Route: 058
     Dates: start: 20130910
  10. FLUOROMETHOLONE. [Concomitant]
     Active Substance: FLUOROMETHOLONE
     Indication: CONJUNCTIVITIS
     Dosage: UNK
     Dates: start: 20130816
  11. DEXAMETHASONE. [Suspect]
     Active Substance: DEXAMETHASONE
     Indication: PLASMA CELL MYELOMA
     Dosage: 20 MG, UNK
     Route: 048
     Dates: start: 20130910
  12. SULFAMETHOXAZOLE AND TRIMETHOPRIM [Concomitant]
     Active Substance: SULFAMETHOXAZOLE\TRIMETHOPRIM
     Indication: INFECTION PROPHYLAXIS
     Dosage: UNK
     Dates: start: 20130910

REACTIONS (1)
  - Bronchopulmonary aspergillosis [Recovered/Resolved]

NARRATIVE: CASE EVENT DATE: 20131204
